FAERS Safety Report 17762946 (Version 12)
Quarter: 2021Q1

REPORT INFORMATION
  Report Type: Report from Study
  Country: US (occurrence: US)
  Receive Date: 20200508
  Receipt Date: 20210125
  Transmission Date: 20210419
  Serious: Yes (Other)
  Sender: FDA-Public Use
  Company Number: NVSC2020US125736

PATIENT
  Sex: Male

DRUGS (5)
  1. CARVEDILOL. [Suspect]
     Active Substance: CARVEDILOL
     Indication: PRODUCT USED FOR UNKNOWN INDICATION
     Dosage: UNK, UNKNOWN
     Route: 065
  2. ENTRESTO [Suspect]
     Active Substance: SACUBITRIL\VALSARTAN
     Indication: CARDIAC FAILURE CONGESTIVE
     Dosage: 50 MG, BID
     Route: 048
     Dates: start: 202004
  3. ENTRESTO [Suspect]
     Active Substance: SACUBITRIL\VALSARTAN
     Route: 048
  4. LASIX [Suspect]
     Active Substance: FUROSEMIDE
     Indication: PRODUCT USED FOR UNKNOWN INDICATION
     Dosage: UNK UNK, UNKNOWN (STOPPED X 3 DAYS)
     Route: 065
  5. ENTRESTO [Suspect]
     Active Substance: SACUBITRIL\VALSARTAN
     Dosage: UNK
     Route: 048

REACTIONS (17)
  - Dehydration [Unknown]
  - Weight increased [Unknown]
  - Hypotension [Recovering/Resolving]
  - Intestinal obstruction [Unknown]
  - Gastrointestinal disorder [Unknown]
  - Fluid retention [Unknown]
  - Dyspnoea [Not Recovered/Not Resolved]
  - Abdominal distension [Unknown]
  - Renal impairment [Recovering/Resolving]
  - Decreased appetite [Unknown]
  - Sinusitis [Unknown]
  - Blood sodium abnormal [Unknown]
  - Product dose omission issue [Unknown]
  - Weight decreased [Recovering/Resolving]
  - Ill-defined disorder [Unknown]
  - Constipation [Recovered/Resolved]
  - Wrong technique in product usage process [Unknown]
